FAERS Safety Report 23251881 (Version 1)
Quarter: 2023Q4

REPORT INFORMATION
  Report Type: Spontaneous
  Country: CA (occurrence: CA)
  Receive Date: 20231201
  Receipt Date: 20231201
  Transmission Date: 20240109
  Serious: Yes (Other)
  Sender: FDA-Public Use
  Company Number: CA-FERRINGPH-2023FE02794

PATIENT

DRUGS (4)
  1. ENDOMETRIN [Suspect]
     Active Substance: PROGESTERONE
     Indication: Supplementation therapy
     Dosage: 100 MG, 3 TIMES DAILY
     Route: 067
     Dates: start: 20230224, end: 20230605
  2. ENDOMETRIN [Suspect]
     Active Substance: PROGESTERONE
     Dosage: 100 MG, 3 TIMES DAILY
     Route: 067
     Dates: start: 202207, end: 202207
  3. PROMETRIUM [Suspect]
     Active Substance: PROGESTERONE
     Indication: Supplementation therapy
     Dosage: UNK
     Route: 065
     Dates: start: 202306
  4. CIPRALEX [Concomitant]
     Active Substance: ESCITALOPRAM OXALATE
     Indication: Anxiety disorder
     Dosage: 10 MG, DAILY
     Route: 065
     Dates: start: 2012

REACTIONS (3)
  - Pre-eclampsia [Recovered/Resolved]
  - Recalled product administered [Recovered/Resolved]
  - Off label use [Unknown]

NARRATIVE: CASE EVENT DATE: 20231023
